FAERS Safety Report 17631180 (Version 1)
Quarter: 2020Q2

REPORT INFORMATION
  Report Type: Spontaneous
  Country: US (occurrence: US)
  Receive Date: 20200406
  Receipt Date: 20200406
  Transmission Date: 20200713
  Serious: No
  Sender: FDA-Public Use
  Company Number: US-ASTRAZENECA-2020SE36550

PATIENT
  Age: 65 Year
  Sex: Female

DRUGS (2)
  1. BYDUREON BCISE [Suspect]
     Active Substance: EXENATIDE
     Indication: DIABETES MELLITUS
     Dosage: 2.0MG UNKNOWN
     Route: 065
     Dates: start: 20200308
  2. INSULIN [Concomitant]
     Active Substance: INSULIN NOS
     Dosage: DAILY

REACTIONS (8)
  - Circumstance or information capable of leading to device use error [Unknown]
  - Needle issue [Unknown]
  - Intentional product misuse [Not Recovered/Not Resolved]
  - Injection site pain [Unknown]
  - Device leakage [Unknown]
  - Injection site haemorrhage [Unknown]
  - Wrong technique in device usage process [Not Recovered/Not Resolved]
  - Device issue [Unknown]

NARRATIVE: CASE EVENT DATE: 20200308
